FAERS Safety Report 14480327 (Version 1)
Quarter: 2018Q1

REPORT INFORMATION
  Report Type: Spontaneous
  Country: US (occurrence: US)
  Receive Date: 20180201
  Receipt Date: 20180201
  Transmission Date: 20180509
  Serious: No
  Sender: FDA-Public Use
  Company Number: None

PATIENT
  Sex: Female

DRUGS (1)
  1. PRAVASTATIN. [Suspect]
     Active Substance: PRAVASTATIN

REACTIONS (9)
  - Arthralgia [None]
  - Pain [None]
  - Abdominal pain upper [None]
  - Pyrexia [None]
  - Myalgia [None]
  - Balance disorder [None]
  - Vision blurred [None]
  - Dizziness [None]
  - Pain in extremity [None]
